APPROVED DRUG PRODUCT: SODIUM CHLORIDE 0.9%
Active Ingredient: SODIUM CHLORIDE
Strength: 18MG/2ML (9MG/ML)
Dosage Form/Route: SOLUTION;INJECTION
Application: A201833 | Product #001
Applicant: HIKMA PHARMACEUTICALS USA INC
Approved: Sep 24, 2013 | RLD: No | RS: No | Type: RX